FAERS Safety Report 8231994-4 (Version None)
Quarter: 2012Q1

REPORT INFORMATION
  Report Type: 
  Country: None (occurrence: None)
  Receive Date: 20120323
  Receipt Date: 20120313
  Transmission Date: 20120608
  Serious: Yes (Congenital Anomaly)
  Sender: FDA-Public Use
  Company Number: US-JNJFOC-20120308533

PATIENT
  Sex: Female

DRUGS (7)
  1. TOPAMAX [Suspect]
     Route: 064
  2. NITROFURANTOIN [Suspect]
     Indication: FOETAL EXPOSURE DURING PREGNANCY
     Route: 064
     Dates: start: 20051129
  3. TOPAMAX [Suspect]
     Indication: FOETAL EXPOSURE DURING PREGNANCY
     Route: 064
     Dates: start: 20051021
  4. TOPAMAX [Suspect]
     Route: 064
  5. MIDRIN [Suspect]
     Indication: FOETAL EXPOSURE DURING PREGNANCY
     Route: 064
  6. TOPAMAX [Suspect]
     Route: 064
  7. MIGQUIN [Suspect]
     Indication: FOETAL EXPOSURE DURING PREGNANCY
     Route: 064
     Dates: start: 20051024

REACTIONS (6)
  - TONGUE DISORDER [None]
  - CRYPTOPHTHALMOS [None]
  - MICROPHTHALMOS [None]
  - OPTIC NERVE HYPOPLASIA [None]
  - CLEFT LIP AND PALATE [None]
  - PREMATURE BABY [None]
